FAERS Safety Report 4641147-4 (Version None)
Quarter: 2005Q2

REPORT INFORMATION
  Report Type: 
  Country: None (occurrence: None)
  Receive Date: 20050421
  Receipt Date: 20050418
  Transmission Date: 20051028
  Serious: Yes (Death)
  Sender: FDA-Public Use
  Company Number: PHEH2005US04468

PATIENT
  Age: 41 Year
  Sex: Male

DRUGS (1)
  1. TRILEPTAL [Suspect]
     Indication: POST-TRAUMATIC EPILEPSY
     Dosage: 1500 UNK, QD
     Dates: start: 20010820, end: 20050407

REACTIONS (1)
  - EPILEPSY [None]
